FAERS Safety Report 5964960-X (Version None)
Quarter: 2008Q4

REPORT INFORMATION
  Report Type: 
  Country: None (occurrence: None)
  Receive Date: 20081124
  Receipt Date: 20081124
  Transmission Date: 20090506
  Serious: Yes (Other)
  Sender: FDA-Public Use
  Company Number: None

PATIENT
  Age: 45 Year
  Sex: Female
  Weight: 52.1637 kg

DRUGS (3)
  1. CHANTIX [Suspect]
     Indication: SMOKING CESSATION THERAPY
     Dosage: 1 MG 2 X PER DAY PO  ON AND OFF
     Route: 048
     Dates: start: 20080610, end: 20080928
  2. CHANTIX [Suspect]
     Indication: SMOKING CESSATION THERAPY
     Dosage: 1 MG 2 X PER DAY PO  ON AND OFF
     Route: 048
     Dates: start: 20081014, end: 20081123
  3. ALCOHOL [Concomitant]

REACTIONS (12)
  - ABNORMAL BEHAVIOUR [None]
  - ABNORMAL DREAMS [None]
  - ACCIDENT [None]
  - ALCOHOL USE [None]
  - AMNESIA [None]
  - CONFUSIONAL STATE [None]
  - DREAMY STATE [None]
  - IMPRISONMENT [None]
  - LOSS OF CONSCIOUSNESS [None]
  - PARONYCHIA [None]
  - SOMNOLENCE [None]
  - SUICIDAL IDEATION [None]
